FAERS Safety Report 18164733 (Version 3)
Quarter: 2020Q3

REPORT INFORMATION
  Report Type: Spontaneous
  Country: US (occurrence: US)
  Receive Date: 20200818
  Receipt Date: 20200910
  Transmission Date: 20201103
  Serious: No
  Sender: FDA-Public Use
  Company Number: US-BRISTOL-MYERS SQUIBB COMPANY-BMS-2020-066532

PATIENT
  Sex: Female

DRUGS (1)
  1. SPRYCEL [Suspect]
     Active Substance: DASATINIB
     Indication: MYELOID LEUKAEMIA
     Dosage: 80 MILLIGRAM, QD
     Route: 048
     Dates: start: 20200220

REACTIONS (3)
  - Gastrointestinal disorder [Unknown]
  - Diaphragmalgia [Unknown]
  - Abdominal distension [Unknown]
